FAERS Safety Report 5090595-X (Version None)
Quarter: 2006Q3

REPORT INFORMATION
  Report Type: 
  Country: None (occurrence: None)
  Receive Date: 20060828
  Receipt Date: 20060615
  Transmission Date: 20061208
  Serious: No
  Sender: FDA-Public Use
  Company Number: US-GLAXOSMITHKLINE-A0609484A

PATIENT
  Age: 76 Year
  Sex: Male

DRUGS (5)
  1. WELLBUTRIN XL [Suspect]
     Indication: DEPRESSION
     Dosage: 450MG PER DAY
     Route: 048
     Dates: start: 20060109
  2. PAXIL [Suspect]
  3. ZYPREXA [Concomitant]
  4. ATIVAN [Concomitant]
  5. GEODON [Concomitant]

REACTIONS (1)
  - DRUG INEFFECTIVE [None]
